FAERS Safety Report 14225955 (Version 1)
Quarter: 2017Q4

REPORT INFORMATION
  Report Type: Spontaneous
  Country: US (occurrence: US)
  Receive Date: 20171127
  Receipt Date: 20171127
  Transmission Date: 20180321
  Serious: No
  Sender: FDA-Public Use
  Company Number: US-TEVA-802202ACC

PATIENT
  Sex: Female

DRUGS (1)
  1. BUPROPION EXTENDED RELEASE [Suspect]
     Active Substance: BUPROPION
     Dosage: DOSE STRENGTH: 100

REACTIONS (2)
  - Feeling abnormal [Unknown]
  - Vision blurred [Unknown]

NARRATIVE: CASE EVENT DATE: 20170820
